FAERS Safety Report 16964922 (Version 2)
Quarter: 2019Q4

REPORT INFORMATION
  Report Type: Spontaneous
  Country: IT (occurrence: IT)
  Receive Date: 20191028
  Receipt Date: 20191104
  Transmission Date: 20200122
  Serious: Yes (Other)
  Sender: FDA-Public Use
  Company Number: IT-ASTRAZENECA-2019SF50915

PATIENT
  Age: 80 Year
  Sex: Male

DRUGS (14)
  1. LECANIDIPINE [Concomitant]
  2. SPIRONOLACTONE. [Concomitant]
     Active Substance: SPIRONOLACTONE
  3. PAROXETINE. [Concomitant]
     Active Substance: PAROXETINE
  4. APIXABAN [Concomitant]
     Active Substance: APIXABAN
  5. ALLOPURINOL. [Concomitant]
     Active Substance: ALLOPURINOL
  6. TAGRISSO [Suspect]
     Active Substance: OSIMERTINIB
     Indication: NON-SMALL CELL LUNG CANCER STAGE IV
     Route: 048
     Dates: start: 20190321, end: 20190903
  7. ERYTHROPOIETIN [Concomitant]
     Active Substance: ERYTHROPOIETIN
  8. XATRAL [Concomitant]
     Active Substance: ALFUZOSIN
  9. PARACODINE [Concomitant]
     Active Substance: DIHYDROCODEINE BITARTRATE
  10. LASIX [Concomitant]
     Active Substance: FUROSEMIDE
  11. ORAMORPH [Concomitant]
     Active Substance: MORPHINE SULFATE
  12. FOLIC ACID. [Concomitant]
     Active Substance: FOLIC ACID
  13. LANSOPRAZOLE. [Concomitant]
     Active Substance: LANSOPRAZOLE
  14. BISOPROLOL [Concomitant]
     Active Substance: BISOPROLOL

REACTIONS (1)
  - Malignant neoplasm progression [Unknown]
